FAERS Safety Report 9744792 (Version 1)
Quarter: 2013Q4

REPORT INFORMATION
  Report Type: Spontaneous
  Country: FR (occurrence: FR)
  Receive Date: 20131210
  Receipt Date: 20131210
  Transmission Date: 20140711
  Serious: Yes (Hospitalization)
  Sender: FDA-Public Use
  Company Number: FR-ROCHE-1315754

PATIENT
  Age: 63 Year
  Sex: Male

DRUGS (13)
  1. XELODA [Suspect]
     Indication: RECTOSIGMOID CANCER
     Dosage: 1000/M2 TWICE DAILY, TREATMENT DURATION 1 MONTH
     Route: 048
     Dates: start: 20130806, end: 201309
  2. LANTUS [Concomitant]
     Dosage: 13 IU IN THE EVENING
     Route: 065
  3. VENTOLINE [Concomitant]
     Route: 065
  4. BISOCE [Concomitant]
     Dosage: ONE AND HALF TABLETS IN THE MORNING
     Route: 065
  5. BRICANYL [Concomitant]
     Dosage: 1 DF IN THE MORNING AND 1 DF IN THE EVENING
     Route: 065
  6. EUPHYLLINE [Concomitant]
     Dosage: 1 CAPSULE IN THE MORNING AND IN THE EVENING
     Route: 065
  7. SILODYX [Concomitant]
     Dosage: 1 DF IN THE EVENING
     Route: 065
  8. ZYLORIC [Concomitant]
     Dosage: 1 DF IN THE MORNING
     Route: 065
  9. AVASTIN [Concomitant]
     Route: 065
  10. OXALIPLATIN [Concomitant]
     Route: 065
  11. TRANXENE [Concomitant]
  12. ZOPHREN [Concomitant]
  13. METHYLPREDNISOLONE [Concomitant]

REACTIONS (2)
  - Crohn^s disease [Recovered/Resolved]
  - Diarrhoea [Recovered/Resolved]
